FAERS Safety Report 9706523 (Version 1)
Quarter: 2013Q4

REPORT INFORMATION
  Report Type: Report from Study
  Country: CA (occurrence: CA)
  Receive Date: 20131125
  Receipt Date: 20131125
  Transmission Date: 20140711
  Serious: Yes (Hospitalization, Other)
  Sender: FDA-Public Use
  Company Number: CA-JNJFOC-20131109643

PATIENT
  Age: 71 Year
  Sex: Male
  Weight: 95.71 kg

DRUGS (1)
  1. STELARA [Suspect]
     Indication: PSORIASIS
     Route: 058

REACTIONS (6)
  - Thrombosis [Recovered/Resolved]
  - Skin discolouration [Recovering/Resolving]
  - Limb injury [Recovered/Resolved]
  - Impaired healing [Recovering/Resolving]
  - Post procedural infection [Unknown]
  - Splinter [Recovered/Resolved]
